FAERS Safety Report 17559942 (Version 1)
Quarter: 2020Q1

REPORT INFORMATION
  Report Type: Spontaneous
  Country: US (occurrence: US)
  Receive Date: 20200311
  Receipt Date: 20200311
  Transmission Date: 20200409
  Serious: Yes (Hospitalization)
  Sender: FDA-Public Use
  Company Number: None

PATIENT
  Age: 61 Year
  Sex: Female

DRUGS (23)
  1. LITHIUM CARB [Concomitant]
     Active Substance: LITHIUM CARBONATE
  2. QUETIAPINE. [Concomitant]
     Active Substance: QUETIAPINE
  3. TORSEMIDE. [Concomitant]
     Active Substance: TORSEMIDE
  4. TADALAFIL. [Concomitant]
     Active Substance: TADALAFIL
  5. ZOLPIDEM [Concomitant]
     Active Substance: ZOLPIDEM TARTRATE
  6. LETAIRIS [Concomitant]
     Active Substance: AMBRISENTAN
  7. CEFPDOXIME [Concomitant]
  8. MORPHINE [Concomitant]
     Active Substance: MORPHINE
  9. HUMIRA [Suspect]
     Active Substance: ADALIMUMAB
     Indication: CROHN^S DISEASE
     Dosage: ?          OTHER FREQUENCY:QOWK ;?
     Route: 058
     Dates: start: 20160224
  10. HYDROXYCHLOR [Concomitant]
     Active Substance: HYDROXYCHLOROQUINE
  11. OMEPRAZOLE. [Concomitant]
     Active Substance: OMEPRAZOLE
  12. POT CHLORIDE [Concomitant]
     Active Substance: POTASSIUM CHLORIDE
  13. TERBINAFINE. [Concomitant]
     Active Substance: TERBINAFINE
  14. HYDROXY/APAP [Concomitant]
  15. PREDNISONE. [Concomitant]
     Active Substance: PREDNISONE
  16. SILDENAFIL. [Concomitant]
     Active Substance: SILDENAFIL
  17. CLONAZEPAM. [Concomitant]
     Active Substance: CLONAZEPAM
  18. LORAZEPAM. [Concomitant]
     Active Substance: LORAZEPAM
  19. LEFLUNOMIDE. [Concomitant]
     Active Substance: LEFLUNOMIDE
  20. AMBRISENTAN 10MG TAB [Suspect]
     Active Substance: AMBRISENTAN
     Indication: PULMONARY ARTERIAL HYPERTENSION
     Route: 048
     Dates: start: 20191212
  21. GABAPENTIN. [Concomitant]
     Active Substance: GABAPENTIN
  22. IPRATROPIUM [Concomitant]
     Active Substance: IPRATROPIUM
  23. LEVOTHYROXIN [Concomitant]
     Active Substance: LEVOTHYROXINE

REACTIONS (2)
  - Pneumonia [None]
  - Cardiac disorder [None]

NARRATIVE: CASE EVENT DATE: 20200207
